FAERS Safety Report 15462788 (Version 1)
Quarter: 2018Q4

REPORT INFORMATION
  Report Type: Spontaneous
  Country: US (occurrence: US)
  Receive Date: 20181004
  Receipt Date: 20181004
  Transmission Date: 20190204
  Serious: No
  Sender: FDA-Public Use
  Company Number: US-TEVA-2018-US-960671

PATIENT
  Sex: Female

DRUGS (1)
  1. RISEDRONIC ACID [Suspect]
     Active Substance: RISEDRONIC ACID
     Indication: OSTEOPOROSIS
     Dosage: SOMETIMES A WEEK AND ONE DAY
     Route: 065

REACTIONS (3)
  - Dry mouth [Unknown]
  - Oral disorder [Unknown]
  - Inappropriate schedule of product administration [Unknown]
